FAERS Safety Report 16138117 (Version 1)
Quarter: 2019Q1

REPORT INFORMATION
  Report Type: Spontaneous
  Country: DE (occurrence: DE)
  Receive Date: 20190330
  Receipt Date: 20190330
  Transmission Date: 20190418
  Serious: Yes (Life-Threatening, Other)
  Sender: FDA-Public Use
  Company Number: DE-ACCORD-116897

PATIENT
  Age: 81 Year
  Sex: Female
  Weight: 68 kg

DRUGS (16)
  1. METHOTREXATE. [Suspect]
     Active Substance: METHOTREXATE
     Indication: POLYARTHRITIS
     Dosage: DAILY DOSE: 10 MG MILLGRAM(S) EVERY WEEKS
     Dates: end: 20181214
  2. XIPAMIDE [Concomitant]
     Active Substance: XIPAMIDE
     Dosage: DAILY DOSE: 5 MG MILLGRAM(S) EVERY DAYS
     Route: 048
  3. PALLADON [Concomitant]
     Active Substance: HYDROMORPHONE
     Dosage: STRENGTH: 1.2 MG
     Route: 048
  4. MACROGOL/MACROGOL STEARATE [Concomitant]
     Dosage: DAILY DOSE: 2 DF DOSAGE FORM EVERY DAYS
     Route: 048
  5. L-THYROXIN 75 [Concomitant]
     Active Substance: LEVOTHYROXINE
     Dosage: DAILY DOSE: 1 DF DOSAGE FORM EVERY DAYS
     Route: 048
  6. ALENDRONATE SODIUM/ALENDRONIC ACID [Concomitant]
     Dosage: DAILY DOSE: 70 MG MILLGRAM(S) EVERY WEEKS
     Route: 048
  7. EKLIRA [Concomitant]
     Active Substance: ACLIDINIUM BROMIDE
     Dosage: DAILY DOSE: 2 DF DOSAGE FORM EVERY DAYS
     Route: 055
  8. PANTOPRAZOLE/PANTOPRAZOLE SODIUM [Concomitant]
     Dosage: DAILY DOSE: 20 MG MILLGRAM(S) EVERY DAYS
     Route: 048
  9. FOLIC ACID. [Concomitant]
     Active Substance: FOLIC ACID
     Dosage: DAILY DOSE: 5 MG MILLGRAM(S) EVERY WEEKS
     Route: 048
  10. MIRTAZAPINE. [Concomitant]
     Active Substance: MIRTAZAPINE
     Dosage: DAILY DOSE: 15 MG MILLGRAM(S) EVERY DAYS
     Route: 048
  11. SPASMEX [Concomitant]
     Dosage: DAILY DOSE: 15 MG MILLGRAM(S) EVERY DAYS
     Route: 048
  12. CANDESARTAN. [Concomitant]
     Active Substance: CANDESARTAN
     Dosage: DAILY DOSE: 0.5 DF DOSAGE FORM EVERY DAYS
     Route: 048
  13. TORASEMIDE [Concomitant]
     Active Substance: TORSEMIDE
     Dosage: DAILY DOSE: 15 MG MILLGRAM(S) EVERY DAYS
     Route: 048
  14. METAMIZOLE SODIUM [Interacting]
     Active Substance: METAMIZOLE SODIUM
     Indication: PAIN
     Dosage: DAILY DOSE: 4 G GRAM(S) EVERY DAYS
     Route: 048
     Dates: end: 20181214
  15. HYDROMORPHONE/HYDROMORPHONE HYDROCHLORIDE [Concomitant]
     Dosage: DAILY DOSE: 8 MG MILLGRAM(S) EVERY DAYS
     Route: 048
  16. CERTOPARIN SODIUM [Concomitant]
     Active Substance: CERTOPARIN SODIUM
     Dosage: DAILY DOSE: 1 DF DOSAGE FORM EVERY DAYS, STRENGTH: 8000 IE
     Route: 048

REACTIONS (3)
  - Drug interaction [Unknown]
  - Pneumonia [Recovering/Resolving]
  - Agranulocytosis [Recovering/Resolving]

NARRATIVE: CASE EVENT DATE: 20181214
